FAERS Safety Report 19233953 (Version 14)
Quarter: 2022Q2

REPORT INFORMATION
  Report Type: Report from Study
  Country: DE (occurrence: DE)
  Receive Date: 20210508
  Receipt Date: 20220622
  Transmission Date: 20220721
  Serious: Yes (Life-Threatening, Hospitalization)
  Sender: FDA-Public Use
  Company Number: DE-IPSEN GROUP, RESEARCH AND DEVELOPMENT-2021-1195

PATIENT
  Age: 58 Year
  Sex: Female

DRUGS (22)
  1. CABOZANTINIB [Suspect]
     Active Substance: CABOZANTINIB
     Indication: Metastatic renal cell carcinoma
     Dosage: 60 MG, QD
     Route: 048
     Dates: start: 20210401, end: 20210427
  2. CABOZANTINIB [Suspect]
     Active Substance: CABOZANTINIB
     Dosage: 40 MG, QD
     Route: 048
     Dates: start: 20210428, end: 20210429
  3. VITAMIN D3 [Concomitant]
     Active Substance: CHOLECALCIFEROL
     Indication: Bone disorder
     Dosage: 25 UG DAILY
     Route: 048
     Dates: start: 2018, end: 20210427
  4. COMIRNATY [Concomitant]
     Active Substance: TOZINAMERAN
     Indication: COVID-19 prophylaxis
     Dosage: 1 DF ONCE
     Route: 030
     Dates: start: 20210415, end: 20210417
  5. AMITRIPTYLINE HYDROCHLORIDE [Concomitant]
     Active Substance: AMITRIPTYLINE HYDROCHLORIDE
     Indication: Pain
     Dosage: 25 MG DAILY (ONGOING)
     Route: 048
     Dates: start: 20210608
  6. AMITRIPTYLINE HYDROCHLORIDE [Concomitant]
     Active Substance: AMITRIPTYLINE HYDROCHLORIDE
     Indication: Neoplasm progression
  7. SODIUM PICOSULFATE [Concomitant]
     Active Substance: SODIUM PICOSULFATE
     Indication: Constipation prophylaxis
     Dosage: 15 GTT DAILY (ONGOING)
     Route: 048
     Dates: start: 20210608
  8. MOTILIUM [Concomitant]
     Active Substance: DOMPERIDONE
     Indication: Prophylaxis of nausea and vomiting
     Dosage: 2 ML 3 TIMES A DAY
     Route: 048
     Dates: start: 20210527, end: 20210531
  9. MORPHINE SULFATE [Concomitant]
     Active Substance: MORPHINE SULFATE
     Indication: Cancer pain
     Dosage: 20 MG/ML, 4 TIMES 2 GTT.
     Route: 048
     Dates: start: 20210527, end: 20210531
  10. MORPHINE SULFATE [Concomitant]
     Active Substance: MORPHINE SULFATE
     Dosage: 20MG/ML, 4 TIMES PER DAY
     Route: 048
     Dates: start: 20210601, end: 20210603
  11. TINZAPARIN [Concomitant]
     Active Substance: TINZAPARIN
     Indication: Thrombosis prophylaxis
     Dosage: 3500 IU DAILY
     Route: 058
     Dates: start: 20210601, end: 20210607
  12. METAMIZOL [Concomitant]
     Active Substance: METAMIZOLE SODIUM
     Indication: Analgesic therapy
     Dosage: 500 MILLIGRAM 30 GTT. FOUR TIMES PER DAY
     Route: 048
     Dates: start: 20210502
  13. ENOXAPARIN [Concomitant]
     Active Substance: ENOXAPARIN
     Indication: Thrombosis prophylaxis
     Dosage: 4000 IU DAILY
     Route: 058
     Dates: start: 20210508, end: 20210531
  14. METOCLOPRAMIDE [Concomitant]
     Active Substance: METOCLOPRAMIDE
     Indication: Prophylaxis
     Dosage: 10MG, THREE TIMES PER DAY
     Route: 048
     Dates: start: 20210513, end: 20210522
  15. MIRTAZAPINE [Concomitant]
     Active Substance: MIRTAZAPINE
     Indication: Depression
     Dosage: 7.5 MG, DAILY
     Route: 048
     Dates: start: 202105, end: 20210603
  16. K+VERLA [Concomitant]
     Indication: Hypokalaemia
     Dosage: 780MG, TWICE PER DAY (ONGOING)
     Route: 048
     Dates: start: 202105
  17. HUMANALBUMIN 20 PERCENT [Concomitant]
     Indication: Neoplasm progression
     Dosage: 50ML, DAILY
     Route: 048
     Dates: start: 20210604, end: 20210607
  18. BUPRENORPHINE [Concomitant]
     Active Substance: BUPRENORPHINE
     Indication: Pain
     Dosage: 0.2 MICROGRAM, AS NEEDED
     Route: 060
     Dates: start: 20210527, end: 20210531
  19. BUPRENORPHINE [Concomitant]
     Active Substance: BUPRENORPHINE
     Indication: Neoplasm progression
  20. FUROSEMIDE [Concomitant]
     Active Substance: FUROSEMIDE
     Indication: Prophylaxis
     Dosage: 40MG, DAILY
     Route: 048
     Dates: start: 20210608
  21. RINGERS SOLUTION [Concomitant]
     Active Substance: CALCIUM CHLORIDE\POTASSIUM CHLORIDE\SODIUM CHLORIDE
     Indication: Fluid replacement
     Dosage: 500ML, DAILY
     Route: 042
     Dates: start: 20210608
  22. MORPHIN PERFUSOR 100MG/50ML-NACL [Concomitant]
     Indication: Neoplasm progression
     Dosage: 1.15ML/H (ONGOING)
     Route: 042
     Dates: start: 20210608

REACTIONS (3)
  - Peritonitis [Recovered/Resolved]
  - Jejunal perforation [Recovered/Resolved with Sequelae]
  - Pneumonia [Not Recovered/Not Resolved]

NARRATIVE: CASE EVENT DATE: 20210508
